FAERS Safety Report 21816389 (Version 1)
Quarter: 2023Q1

REPORT INFORMATION
  Report Type: Spontaneous
  Country: EG (occurrence: EG)
  Receive Date: 20230104
  Receipt Date: 20230104
  Transmission Date: 20230417
  Serious: Yes (Other)
  Sender: FDA-Public Use
  Company Number: EG-SA-2022SA500065

PATIENT
  Age: 64 Year
  Sex: Female
  Weight: 105 kg

DRUGS (5)
  1. FEXOFENADINE HYDROCHLORIDE\PSEUDOEPHEDRINE HYDROCHLORIDE [Suspect]
     Active Substance: FEXOFENADINE HYDROCHLORIDE\PSEUDOEPHEDRINE HYDROCHLORIDE
     Indication: Cough
     Dosage: 200 MG, Q2H
     Dates: start: 20221124
  2. FEXOFENADINE HYDROCHLORIDE\PSEUDOEPHEDRINE HYDROCHLORIDE [Suspect]
     Active Substance: FEXOFENADINE HYDROCHLORIDE\PSEUDOEPHEDRINE HYDROCHLORIDE
     Indication: Sneezing
  3. FEXOFENADINE HYDROCHLORIDE\PSEUDOEPHEDRINE HYDROCHLORIDE [Suspect]
     Active Substance: FEXOFENADINE HYDROCHLORIDE\PSEUDOEPHEDRINE HYDROCHLORIDE
     Indication: Oropharyngeal pain
  4. OLMESARTAN MEDOXOMIL [Concomitant]
     Active Substance: OLMESARTAN MEDOXOMIL
     Indication: Hypertension
     Dosage: 20 MG, QD
  5. VALSARTAN [Concomitant]
     Active Substance: VALSARTAN
     Dosage: UNK

REACTIONS (5)
  - Hypertension [Recovered/Resolved]
  - Dysphonia [Unknown]
  - Chest discomfort [Unknown]
  - Drug ineffective [Unknown]
  - Product residue present [Unknown]
